FAERS Safety Report 7526492-7 (Version None)
Quarter: 2011Q2

REPORT INFORMATION
  Report Type: 
  Country: None (occurrence: None)
  Receive Date: 20110606
  Receipt Date: 20110523
  Transmission Date: 20111010
  Serious: Yes (Other)
  Sender: FDA-Public Use
  Company Number: DE-UCBSA-023658

PATIENT
  Sex: Male
  Weight: 3.94 kg

DRUGS (7)
  1. KEPPRA [Suspect]
     Indication: EPILEPSY
     Route: 064
  2. LAMOTRIGINE [Concomitant]
     Route: 064
     Dates: start: 20100516, end: 20101001
  3. FOLIC ACID [Concomitant]
     Indication: EPILEPSY
     Route: 064
     Dates: start: 20100409, end: 20100515
  4. KEPPRA [Suspect]
     Route: 064
     Dates: start: 20100409, end: 20101001
  5. LORAZEPAM [Concomitant]
     Indication: EPILEPSY
     Route: 064
     Dates: start: 20100409, end: 20100515
  6. LAMOTRIGINE [Concomitant]
     Route: 064
  7. LAMOTRIGINE [Concomitant]
     Indication: EPILEPSY
     Route: 064

REACTIONS (5)
  - DRUG EXPOSURE DURING PREGNANCY [None]
  - NEONATAL RESPIRATORY DISTRESS SYNDROME [None]
  - OXYGEN SATURATION [None]
  - BRADYCARDIA NEONATAL [None]
  - POOR SUCKING REFLEX [None]
